FAERS Safety Report 22947869 (Version 2)
Quarter: 2023Q4

REPORT INFORMATION
  Report Type: Report from Study
  Country: EG (occurrence: EG)
  Receive Date: 20230915
  Receipt Date: 20231002
  Transmission Date: 20240109
  Serious: Yes (Hospitalization)
  Sender: FDA-Public Use
  Company Number: EG-ABBVIE-5404235

PATIENT
  Age: 32 Year
  Sex: Female

DRUGS (3)
  1. HUMIRA [Suspect]
     Active Substance: ADALIMUMAB
     Indication: Crohn^s disease
     Dosage: 1 INJECTION/ 2 WEEKS
     Route: 058
     Dates: start: 20230721, end: 202308
  2. HUMIRA [Suspect]
     Active Substance: ADALIMUMAB
     Indication: Costochondritis
     Dosage: 1 INJECTION/ 2 WEEKS?START DATE-2023
     Route: 058
  3. STELARA [Suspect]
     Active Substance: USTEKINUMAB
     Indication: Costochondritis
     Route: 065

REACTIONS (12)
  - Viral infection [Recovering/Resolving]
  - Blood albumin decreased [Recovering/Resolving]
  - Chest pain [Unknown]
  - Illness [Not Recovered/Not Resolved]
  - Swelling [Unknown]
  - Therapeutic product effect incomplete [Not Recovered/Not Resolved]
  - Mouth ulceration [Unknown]
  - Dysstasia [Unknown]
  - Tremor [Unknown]
  - Aphonia [Unknown]
  - Nasopharyngitis [Unknown]
  - Drug hypersensitivity [Unknown]

NARRATIVE: CASE EVENT DATE: 20230101
